FAERS Safety Report 23718003 (Version 1)
Quarter: 2024Q2

REPORT INFORMATION
  Report Type: Spontaneous
  Country: US (occurrence: US)
  Receive Date: 20240408
  Receipt Date: 20240408
  Transmission Date: 20240716
  Serious: Yes (Hospitalization, Other)
  Sender: FDA-Public Use
  Company Number: None

PATIENT
  Age: 23 Year
  Sex: Female
  Weight: 62 kg

DRUGS (5)
  1. TACROLIMUS [Suspect]
     Active Substance: TACROLIMUS
     Indication: Immunosuppressant drug therapy
     Dosage: AT THE TIME OF THE INDEX CLINIC, TARGET GOAL OF 4 TO 6 MG/DL
  2. TACROLIMUS [Suspect]
     Active Substance: TACROLIMUS
     Dosage: FIVE YEARS PRIOR, TARGET LEVEL OF TACROLIMUS WAS INCREASED
  3. TACROLIMUS [Suspect]
     Active Substance: TACROLIMUS
  4. PREDNISONE [Suspect]
     Active Substance: PREDNISONE
     Indication: Immunosuppressant drug therapy
  5. MYFORTIC [Suspect]
     Active Substance: MYCOPHENOLATE SODIUM
     Indication: Immunosuppressant drug therapy
     Dates: end: 202102

REACTIONS (1)
  - Post transplant lymphoproliferative disorder [Recovered/Resolved]

NARRATIVE: CASE EVENT DATE: 20210601
